FAERS Safety Report 5827437-8 (Version None)
Quarter: 2008Q3

REPORT INFORMATION
  Report Type: 
  Country: None (occurrence: None)
  Receive Date: 20080730
  Receipt Date: 20080718
  Transmission Date: 20090109
  Serious: Yes (Hospitalization)
  Sender: FDA-Public Use
  Company Number: DE-ELI_LILLY_AND_COMPANY-DE200807005744

PATIENT
  Age: 87 Year
  Sex: Female

DRUGS (6)
  1. HUMALOG [Suspect]
     Indication: TYPE 2 DIABETES MELLITUS
     Dosage: UNK, UNKNOWN
     Route: 058
  2. SIMVAHEXAL [Concomitant]
     Dosage: UNK, UNKNOWN
     Route: 065
  3. TOREM [Concomitant]
     Dosage: UNK, UNKNOWN
     Route: 065
  4. BISOHEXAL [Concomitant]
     Dosage: UNK, UNKNOWN
     Route: 065
  5. ISDN [Concomitant]
     Dosage: UNK, UNKNOWN
     Route: 065
  6. MARCUMAR [Concomitant]
     Dosage: UNK, UNKNOWN
     Route: 065

REACTIONS (2)
  - HYPOGLYCAEMIA [None]
  - LOSS OF CONSCIOUSNESS [None]
